FAERS Safety Report 5316321-4 (Version None)
Quarter: 2007Q2

REPORT INFORMATION
  Report Type: 
  Country: None (occurrence: None)
  Receive Date: 20070430
  Receipt Date: 20070424
  Transmission Date: 20071010
  Serious: Yes (Death)
  Sender: FDA-Public Use
  Company Number: 163-21880-07040186

PATIENT
  Age: 63 Year
  Sex: Male

DRUGS (2)
  1. REVLIMID [Suspect]
     Indication: MULTIPLE MYELOMA
     Dosage: 25 MG, DAILY X3 WEEKS/1 WEEK OFF, ORAL
     Route: 048
     Dates: start: 20061001, end: 20070301
  2. DEXAMETHASONE TAB [Suspect]
     Indication: MULTIPLE MYELOMA
     Dates: start: 20061001, end: 20070101

REACTIONS (3)
  - ACUTE RESPIRATORY FAILURE [None]
  - FEBRILE NEUTROPENIA [None]
  - PNEUMONIA [None]
